FAERS Safety Report 22595221 (Version 5)
Quarter: 2023Q4

REPORT INFORMATION
  Report Type: Report from Study
  Country: US (occurrence: US)
  Receive Date: 20230613
  Receipt Date: 20231213
  Transmission Date: 20240110
  Serious: No
  Sender: FDA-Public Use
  Company Number: US-002147023-NVSC2023US134726

PATIENT
  Age: 79 Year
  Sex: Female

DRUGS (1)
  1. LEQVIO [Suspect]
     Active Substance: INCLISIRAN SODIUM
     Indication: Product used for unknown indication
     Dosage: UNK
     Route: 058
     Dates: start: 20230301

REACTIONS (5)
  - Injection site pain [Recovered/Resolved]
  - Limb discomfort [Unknown]
  - Malaise [Unknown]
  - Muscle spasms [Unknown]
  - Hypotension [Unknown]

NARRATIVE: CASE EVENT DATE: 20231201
